FAERS Safety Report 8785709 (Version 2)
Quarter: 2012Q4

REPORT INFORMATION
  Report Type: 
  Country: DE (occurrence: DE)
  Receive Date: 20120914
  Receipt Date: 20121102
  Transmission Date: 20130627
  Serious: Yes (Hospitalization)
  Sender: FDA-Public Use
  Company Number: DE-JNJFOC-20120904169

PATIENT
  Age: 57 Year
  Sex: Male

DRUGS (13)
  1. REOPRO [Suspect]
     Indication: ACUTE CORONARY SYNDROME
     Dosage: received 10 mg for about 12 hours
     Route: 022
     Dates: start: 20120826, end: 20120827
  2. EFFIENT [Suspect]
     Indication: PERCUTANEOUS CORONARY INTERVENTION
     Dosage: 10 (unit unspecified)
     Route: 048
     Dates: start: 20120826, end: 20120903
  3. EFFIENT [Suspect]
     Indication: ACUTE MYOCARDIAL INFARCTION
     Dosage: 10 (unit unspecified)
     Route: 048
     Dates: start: 20120826, end: 20120903
  4. HEPARIN [Concomitant]
     Route: 065
  5. ACETYLSALICYLIC ACID [Concomitant]
     Route: 048
     Dates: start: 20120904
  6. ACETYLSALICYLIC ACID [Concomitant]
     Dosage: 100 (units unspecified)
     Route: 048
     Dates: start: 20120826
  7. TOREM [Concomitant]
     Route: 065
  8. HCT [Concomitant]
     Route: 065
  9. RAMIPRIL [Concomitant]
     Route: 065
  10. SIMVASTATIN [Concomitant]
     Route: 065
  11. BISOPROLOL [Concomitant]
     Route: 065
  12. EPLERENONE [Concomitant]
     Route: 065
  13. CLOPIDOGREL [Concomitant]
     Route: 048
     Dates: start: 20120904

REACTIONS (3)
  - Thrombocytopenia [Recovered/Resolved]
  - Toxicity to various agents [Recovered/Resolved]
  - Incorrect route of drug administration [Recovered/Resolved]
